FAERS Safety Report 12250576 (Version 2)
Quarter: 2016Q3

REPORT INFORMATION
  Report Type: Spontaneous
  Country: IS (occurrence: IS)
  Receive Date: 20160408
  Receipt Date: 20160705
  Transmission Date: 20161109
  Serious: Yes (Congenital Anomaly)
  Sender: FDA-Public Use
  Company Number: PHHY2016IS043994

PATIENT
  Sex: Male
  Weight: 1.68 kg

DRUGS (5)
  1. MIRON [Concomitant]
     Indication: FOETAL EXPOSURE DURING PREGNANCY
     Dosage: UNK MATERNAL DOSE 1 DF DAILY
     Route: 064
  2. PHENERGAN [Concomitant]
     Active Substance: PROMETHAZINE HYDROCHLORIDE
     Indication: FOETAL EXPOSURE DURING PREGNANCY
     Dosage: UNK
     Route: 064
  3. SERTRAL [Concomitant]
     Indication: FOETAL EXPOSURE DURING PREGNANCY
     Dosage: UNK, MATERNAL DOSE 1 DF DAILY (50MG)
     Route: 064
  4. RITALIN [Suspect]
     Active Substance: METHYLPHENIDATE HYDROCHLORIDE
     Indication: FOETAL EXPOSURE DURING PREGNANCY
     Dosage: UNK, MATERNAL DOSE 15 MG QID
     Route: 064
  5. IMOVANE [Concomitant]
     Active Substance: ZOPICLONE
     Indication: FOETAL EXPOSURE DURING PREGNANCY
     Dosage: UNK, MATERNAL DOSE 2 DF IN EVENING (15 MG)
     Route: 064

REACTIONS (2)
  - Low birth weight baby [Unknown]
  - Foetal growth restriction [Unknown]
